FAERS Safety Report 18405354 (Version 4)
Quarter: 2021Q2

REPORT INFORMATION
  Report Type: Spontaneous
  Country: US (occurrence: US)
  Receive Date: 20201020
  Receipt Date: 20210408
  Transmission Date: 20210717
  Serious: No
  Sender: FDA-Public Use
  Company Number: US-PFIZER INC-2020403214

PATIENT
  Age: 51 Year
  Sex: Male

DRUGS (1)
  1. XELJANZ [Suspect]
     Active Substance: TOFACITINIB CITRATE
     Indication: COLITIS ULCERATIVE
     Dosage: 10 MG, TWICE A DAY
     Route: 048
     Dates: start: 20201004, end: 202101

REACTIONS (6)
  - Product dose omission issue [Unknown]
  - Sleep disorder [Unknown]
  - Energy increased [Unknown]
  - Drug ineffective [Unknown]
  - Abdominal discomfort [Recovered/Resolved]
  - Therapeutic response unexpected [Unknown]

NARRATIVE: CASE EVENT DATE: 2020
